FAERS Safety Report 11912986 (Version 1)
Quarter: 2016Q1

REPORT INFORMATION
  Report Type: Spontaneous
  Country: US (occurrence: US)
  Receive Date: 20160113
  Receipt Date: 20160113
  Transmission Date: 20160526
  Serious: Yes (Hospitalization)
  Sender: FDA-Public Use
  Company Number: US-SA-2016SA006291

PATIENT
  Age: 53 Year
  Sex: Male

DRUGS (1)
  1. FABRAZYME [Suspect]
     Active Substance: AGALSIDASE BETA
     Indication: FABRY^S DISEASE
     Dosage: DOSE- 35 MG (FABRAZYME WITH STRENGTH 35 MG), 30 MG (FABRAZYME WITH STRENGTH 5 MG)
     Route: 041
     Dates: start: 20101002

REACTIONS (1)
  - Phlebitis [Unknown]

NARRATIVE: CASE EVENT DATE: 20151215
